FAERS Safety Report 20771115 (Version 3)
Quarter: 2022Q3

REPORT INFORMATION
  Report Type: Spontaneous
  Country: US (occurrence: US)
  Receive Date: 20220429
  Receipt Date: 20220718
  Transmission Date: 20221027
  Serious: No
  Sender: FDA-Public Use
  Company Number: US-TEVA-2022-US-2025468

PATIENT
  Age: 52 Year
  Sex: Female

DRUGS (3)
  1. AJOVY [Suspect]
     Active Substance: FREMANEZUMAB-VFRM
     Indication: Migraine with aura
     Dosage: AUTOINJECTOR
     Route: 065
     Dates: start: 20211209
  2. AJOVY [Suspect]
     Active Substance: FREMANEZUMAB-VFRM
     Dosage: AUTOINJECTOR
     Route: 065
     Dates: start: 202201
  3. AJOVY [Suspect]
     Active Substance: FREMANEZUMAB-VFRM
     Dosage: AUTOINJECTOR
     Route: 065
     Dates: start: 202202

REACTIONS (4)
  - Burning sensation [Recovered/Resolved]
  - Erythema [Recovered/Resolved]
  - Accidental exposure to product [Unknown]
  - Device leakage [Unknown]

NARRATIVE: CASE EVENT DATE: 20220201
